FAERS Safety Report 4551191-3 (Version None)
Quarter: 2005Q1

REPORT INFORMATION
  Report Type: 
  Country: None (occurrence: None)
  Receive Date: 20050106
  Receipt Date: 20041230
  Transmission Date: 20050727
  Serious: Yes (Hospitalization)
  Sender: FDA-Public Use
  Company Number: FR-2004-037256

PATIENT
  Age: 63 Year
  Sex: Male

DRUGS (3)
  1. ULTRAVIST 370 [Suspect]
     Indication: COMPUTERISED TOMOGRAM THORAX
     Dosage: 100 ML,1X/DAY, INTRAVENOUS
     Route: 042
     Dates: start: 20041216, end: 20041216
  2. SOLU-MEDROL [Concomitant]
  3. POLARAMINE [Concomitant]

REACTIONS (1)
  - ANAPHYLACTIC SHOCK [None]
